FAERS Safety Report 6251900-1 (Version None)
Quarter: 2009Q2

REPORT INFORMATION
  Report Type: 
  Country: None (occurrence: None)
  Receive Date: 20090629
  Receipt Date: 20090616
  Transmission Date: 20091009
  Serious: No
  Sender: FDA-Public Use
  Company Number: 303119

PATIENT
  Age: 65 Year

DRUGS (4)
  1. MIDAZOLAM HYDROCHLORIDE [Suspect]
     Indication: COLONOSCOPY
     Dosage: 2 MG, INTRAVENOUS
     Route: 042
     Dates: start: 20090424, end: 20090424
  2. MEPERIDINE HCL [Suspect]
     Indication: COLONOSCOPY
     Dosage: 25 MG, INTRAVENOUS
     Route: 042
     Dates: start: 20090424, end: 20090424
  3. MEPERIDINE HCL [Suspect]
     Indication: COLONOSCOPY
     Dosage: 25 MG, INTRAVENOUS
     Route: 042
     Dates: start: 20090424, end: 20090424
  4. ALBUTEROL [Concomitant]

REACTIONS (1)
  - ANAPHYLACTIC REACTION [None]
